FAERS Safety Report 9928749 (Version 2)
Quarter: 2014Q2

REPORT INFORMATION
  Report Type: Spontaneous
  Country: US (occurrence: US)
  Receive Date: 20140227
  Receipt Date: 20140407
  Transmission Date: 20141212
  Serious: Yes (Death)
  Sender: FDA-Public Use
  Company Number: US-INCYTE CORPORATION-2014IN000482

PATIENT
  Age: 85 Year
  Sex: Female

DRUGS (3)
  1. JAKAFI [Suspect]
     Indication: MYELOFIBROSIS
     Dosage: NOT SPECIFIED
     Route: 048
     Dates: start: 201202, end: 20131211
  2. JAKAFI [Suspect]
     Dosage: 10 MG, QD
     Route: 048
     Dates: start: 20131212, end: 20140104
  3. PREDNISONE [Concomitant]
     Dosage: UNK
     Dates: start: 201202, end: 20140104

REACTIONS (3)
  - Clostridium difficile colitis [Fatal]
  - Septic shock [Fatal]
  - Pneumonia [Fatal]
